FAERS Safety Report 11796348 (Version 1)
Quarter: 2015Q4

REPORT INFORMATION
  Report Type: Spontaneous
  Country: US (occurrence: US)
  Receive Date: 20151203
  Receipt Date: 20151203
  Transmission Date: 20160305
  Serious: No
  Sender: FDA-Public Use
  Company Number: US-PFIZER INC-2015405035

PATIENT
  Age: 22 Year
  Sex: Female

DRUGS (1)
  1. GABAPENTIN. [Suspect]
     Active Substance: GABAPENTIN
     Indication: ANXIETY
     Dosage: UNK

REACTIONS (4)
  - Pyrexia [Unknown]
  - Viral infection [Unknown]
  - Product use issue [Unknown]
  - Respiratory disorder [Unknown]
